FAERS Safety Report 21555039 (Version 1)
Quarter: 2022Q4

REPORT INFORMATION
  Report Type: Spontaneous
  Country: US (occurrence: US)
  Receive Date: 20221104
  Receipt Date: 20221104
  Transmission Date: 20230113
  Serious: Yes (Life-Threatening, Hospitalization)
  Sender: FDA-Public Use
  Company Number: US-MYLANLABS-2022M1121173

PATIENT
  Age: 30 Year
  Sex: Male
  Weight: 75 kg

DRUGS (17)
  1. NOREPINEPHRINE [Suspect]
     Active Substance: NOREPINEPHRINE
     Indication: Hypotension
     Dosage: UNK, INFUSION
     Route: 065
  2. NOREPINEPHRINE [Suspect]
     Active Substance: NOREPINEPHRINE
     Dosage: UNK (0.32 MCG/KG)
     Route: 065
  3. NOREPINEPHRINE [Suspect]
     Active Substance: NOREPINEPHRINE
     Indication: Hypotension
     Dosage: UNK, QMINUTE, 0.32 MCG/KG
     Route: 065
  4. VASOPRESSIN [Suspect]
     Active Substance: VASOPRESSIN
     Indication: Hypotension
     Dosage: UNK
     Route: 042
  5. VASOPRESSIN [Suspect]
     Active Substance: VASOPRESSIN
     Indication: Hypotension
     Dosage: 0.04 U/MIN
     Route: 065
  6. ALBUMIN HUMAN [Suspect]
     Active Substance: ALBUMIN HUMAN
     Indication: Resuscitation
     Dosage: UNK
     Route: 065
  7. ELECTROLYTES NOS [Suspect]
     Active Substance: ELECTROLYTES NOS
     Indication: Fluid replacement
     Dosage: UNK
     Route: 042
  8. ELECTROLYTES NOS [Suspect]
     Active Substance: ELECTROLYTES NOS
     Dosage: 5 LITER
     Route: 042
  9. TROMETHAMINE [Suspect]
     Active Substance: TROMETHAMINE
     Indication: Lactic acidosis
     Dosage: UNK
     Route: 042
  10. DEXTROSE [Suspect]
     Active Substance: DEXTROSE
     Indication: Fluid replacement
     Dosage: UNK
     Route: 042
  11. DEXTROSE [Suspect]
     Active Substance: DEXTROSE
     Dosage: 6 MILLIGRAM/KILOGRAM, QMINUTE
     Route: 042
  12. BIOTIN [Concomitant]
     Active Substance: BIOTIN
     Indication: Neurodegenerative disorder
     Dosage: UNK
     Route: 065
  13. RIBOFLAVIN [Concomitant]
     Active Substance: RIBOFLAVIN
     Indication: Neurodegenerative disorder
     Dosage: UNK
     Route: 065
  14. DIETARY SUPPLEMENT\UBIDECARENONE [Concomitant]
     Active Substance: DIETARY SUPPLEMENT\UBIDECARENONE
     Indication: Neurodegenerative disorder
     Dosage: UNK
     Route: 065
  15. VITAMIN E [Concomitant]
     Active Substance: .ALPHA.-TOCOPHEROL
     Indication: Neurodegenerative disorder
     Dosage: UNK
     Route: 065
  16. ALPHA LIPOIC ACID [Concomitant]
     Active Substance: .ALPHA.-LIPOIC ACID
     Indication: Neurodegenerative disorder
     Dosage: UNK
     Route: 065
  17. EPINEPHRINE [Concomitant]
     Active Substance: EPINEPHRINE
     Indication: Positive cardiac inotropic effect
     Dosage: UNK, INFUSION
     Route: 042

REACTIONS (1)
  - Drug ineffective [Unknown]
